FAERS Safety Report 8612138-3 (Version None)
Quarter: 2012Q3

REPORT INFORMATION
  Report Type: 
  Country: None (occurrence: None)
  Receive Date: 20120822
  Receipt Date: 20120813
  Transmission Date: 20120928
  Serious: No
  Sender: FDA-Public Use
  Company Number: US-ASTRAZENECA-2012SE57377

PATIENT
  Age: 75 Year
  Sex: Female

DRUGS (1)
  1. NEXIUM [Suspect]
     Route: 048

REACTIONS (5)
  - THROAT IRRITATION [None]
  - DRY EYE [None]
  - EYE IRRITATION [None]
  - MULTIPLE ALLERGIES [None]
  - HEARING DISABILITY [None]
